FAERS Safety Report 4553740-8 (Version None)
Quarter: 2004Q4

REPORT INFORMATION
  Report Type: 
  Country: None (occurrence: None)
  Receive Date: 20041227
  Receipt Date: 20041020
  Transmission Date: 20050328
  Serious: No
  Sender: FDA-Public Use
  Company Number: 04P-163-0278291-00

PATIENT
  Age: 55 Year
  Sex: Female
  Weight: 59.8748 kg

DRUGS (4)
  1. HUMIRA [Suspect]
     Indication: RHEUMATOID ARTHRITIS
     Dosage: 40 MG, 1 IN 2 WK, SUBCUTANEOUS
     Route: 058
     Dates: start: 20041015
  2. LEVOTHYROXINE SODIUM [Concomitant]
  3. PREDNISONE [Concomitant]
  4. PAROXETINE HYDROCHLORIDE [Concomitant]

REACTIONS (3)
  - FATIGUE [None]
  - HEADACHE [None]
  - NAUSEA [None]
